FAERS Safety Report 9388131 (Version 7)
Quarter: 2014Q1

REPORT INFORMATION
  Report Type: Spontaneous
  Country: US (occurrence: None)
  Receive Date: 20130703
  Receipt Date: 20140207
  Transmission Date: 20141002
  Serious: Yes (Hospitalization)
  Sender: FDA-Public Use
  Company Number: 149020

PATIENT
  Age: 56 Year
  Sex: Female

DRUGS (1)
  1. CYTARABINE [Suspect]
     Indication: ACUTE MYELOID LEUKAEMIA
     Dosage: 1 DAY
     Dates: start: 20130426, end: 20130430

REACTIONS (10)
  - Mucosal inflammation [None]
  - Bacteraemia [None]
  - Oropharyngeal pain [None]
  - Nausea [None]
  - Vomiting [None]
  - Dysphagia [None]
  - Streptococcus test positive [None]
  - White blood cell count decreased [None]
  - Neutrophil count decreased [None]
  - Cardiac failure [None]
